FAERS Safety Report 16129301 (Version 1)
Quarter: 2019Q1

REPORT INFORMATION
  Report Type: Spontaneous
  Country: FR (occurrence: FR)
  Receive Date: 20190328
  Receipt Date: 20190328
  Transmission Date: 20190418
  Serious: Yes (Hospitalization, Other)
  Sender: FDA-Public Use
  Company Number: FR-PROVELL PHARMACEUTICALS-2064854

PATIENT
  Age: 71 Year
  Sex: Female
  Weight: 58 kg

DRUGS (5)
  1. EZETIMIBE. [Concomitant]
     Active Substance: EZETIMIBE
  2. INDAPAMIDE. [Concomitant]
     Active Substance: INDAPAMIDE
  3. ESOMEPRAZOLE. [Concomitant]
     Active Substance: ESOMEPRAZOLE MAGNESIUM
  4. FLUIDEX [Concomitant]
  5. EUTHYROX [Suspect]
     Active Substance: LEVOTHYROXINE SODIUM
     Indication: HYPOTHYROIDISM
     Dates: start: 201707, end: 20170917

REACTIONS (32)
  - General physical health deterioration [None]
  - Deafness [Recovered/Resolved]
  - Anxiety [Recovered/Resolved]
  - Gait inability [Recovered/Resolved]
  - Gamma-glutamyltransferase increased [Recovered/Resolved]
  - Palpitations [Recovered/Resolved]
  - Low density lipoprotein increased [Unknown]
  - Diplopia [Not Recovered/Not Resolved]
  - Asthma [Not Recovered/Not Resolved]
  - Arrhythmia [None]
  - White blood cell count increased [Recovered/Resolved]
  - Blood creatinine increased [Recovered/Resolved]
  - Loss of personal independence in daily activities [None]
  - Myalgia [Recovered/Resolved]
  - Impaired driving ability [Recovered/Resolved]
  - Fall [Recovered/Resolved]
  - Vertigo [Recovered/Resolved]
  - Sleep apnoea syndrome [Recovered/Resolved]
  - Migraine [Recovered/Resolved]
  - Fatigue [Recovered/Resolved]
  - Memory impairment [Recovered/Resolved]
  - Blood urea increased [Recovered/Resolved]
  - Muscle spasms [Recovered/Resolved]
  - Tachycardia [Recovered/Resolved]
  - Dizziness [Recovered/Resolved]
  - Loose tooth [Recovered/Resolved]
  - Asthenia [Recovered/Resolved]
  - Insomnia [Recovered/Resolved]
  - Dyspnoea at rest [Not Recovered/Not Resolved]
  - Balance disorder [Recovered/Resolved]
  - Headache [Recovered/Resolved]
  - Brain natriuretic peptide increased [Unknown]

NARRATIVE: CASE EVENT DATE: 2017
